FAERS Safety Report 6705650 (Version 1)
Quarter: 2020Q3

REPORT INFORMATION
  Report Type: Spontaneous
  Country: GB (occurrence: GB)
  Receive Date: 20080722
  Receipt Date: 20080722
  Transmission Date: 20201104
  Serious: Yes (Disabling)
  Sender: FDA-Public Use
  Company Number: PHHY2008GB14067

PATIENT
  Age: 59 Year
  Sex: Male
  Weight: 65 kg

DRUGS (4)
  1. ZOMETA [Suspect]
     Active Substance: ZOLEDRONIC ACID
     Indication: METASTASES TO BONE
     Dosage: 3.3 ? 4 MG
     Route: 042
     Dates: start: 200507, end: 200608
  2. INTERFERON NOS [Concomitant]
     Active Substance: INTERFERON
     Dosage: 5 ? 10 MICRO UNITS
     Dates: start: 200507, end: 200609
  3. MEGACE [Concomitant]
     Active Substance: MEGESTROL ACETATE
     Dosage: 160 MG, UNK
  4. IBANDRONIC ACID. [Suspect]
     Active Substance: IBANDRONIC ACID
     Dosage: 50 MG, UNK
     Route: 048
     Dates: start: 200610, end: 200705

REACTIONS (1)
  - Osteonecrosis [Not Recovered/Not Resolved]

NARRATIVE: CASE EVENT DATE: 20070501
